FAERS Safety Report 4431736-4 (Version None)
Quarter: 2004Q3

REPORT INFORMATION
  Report Type: 
  Country: None (occurrence: None)
  Receive Date: 20040823
  Receipt Date: 20040823
  Transmission Date: 20050211
  Serious: Yes (Hospitalization)
  Sender: FDA-Public Use
  Company Number: None

PATIENT
  Age: 62 Year
  Sex: Female
  Weight: 97.977 kg

DRUGS (8)
  1. CLODRONATE [Suspect]
     Indication: BREAST CANCER
     Dosage: 1600 MG/DAY X 3 YRS
     Dates: start: 20040102
  2. TAMOXIFIEN [Suspect]
     Indication: BREAST CANCER
     Dosage: 20 MG /DAY
     Dates: start: 20040102
  3. PLACEBO [Suspect]
  4. VASOTEC [Concomitant]
  5. TOPROL-XL [Concomitant]
  6. VIOXX [Concomitant]
  7. PEPCID [Concomitant]
  8. FIORICET [Concomitant]

REACTIONS (21)
  - AFFECT LABILITY [None]
  - AGITATION [None]
  - ANHEDONIA [None]
  - ANXIETY [None]
  - APATHY [None]
  - APPETITE DISORDER [None]
  - ARTHRITIS [None]
  - ASTHENIA [None]
  - DEPRESSED MOOD [None]
  - DEPRESSION [None]
  - DYSPHORIA [None]
  - FATIGUE [None]
  - FEELING ABNORMAL [None]
  - MENTAL DISORDER [None]
  - MOOD ALTERED [None]
  - NECK PAIN [None]
  - PSYCHOMOTOR RETARDATION [None]
  - SELF ESTEEM DECREASED [None]
  - SLEEP DISORDER [None]
  - SPEECH DISORDER [None]
  - THINKING ABNORMAL [None]
